FAERS Safety Report 6613401-8 (Version None)
Quarter: 2010Q1

REPORT INFORMATION
  Report Type: 
  Country: None (occurrence: None)
  Receive Date: 20100304
  Receipt Date: 20100222
  Transmission Date: 20100710
  Serious: Yes (Other)
  Sender: FDA-Public Use
  Company Number: JP-NOVOPROD-303947

PATIENT
  Age: 12 Year
  Sex: Male
  Weight: 28 kg

DRUGS (2)
  1. NORDITROPIN NORDIFLEX [Suspect]
     Indication: GROWTH HORMONE DEFICIENCY
     Dosage: 0.7 MG, QD
     Route: 058
     Dates: start: 20090723, end: 20091023
  2. NORDITROPIN NORDIFLEX [Suspect]
     Dosage: 0.3 MG, QD
     Dates: start: 20091118

REACTIONS (2)
  - TOOTHACHE [None]
  - TRANSAMINASES INCREASED [None]
